FAERS Safety Report 12633087 (Version 2)
Quarter: 2016Q3

REPORT INFORMATION
  Report Type: Spontaneous
  Country: US (occurrence: US)
  Receive Date: 20160808
  Receipt Date: 20160808
  Transmission Date: 20161109
  Serious: No
  Sender: FDA-Public Use
  Company Number: US-BEH-2016058406

PATIENT
  Sex: Male
  Weight: 17 kg

DRUGS (11)
  1. PREVACID [Concomitant]
     Active Substance: LANSOPRAZOLE
  2. ACETAMINOPHEN. [Concomitant]
     Active Substance: ACETAMINOPHEN
     Dosage: 160 MG/5 ML ELX
  3. AMOXICILLIN. [Concomitant]
     Active Substance: AMOXICILLIN
  4. DIPHENHYDRAMINE. [Concomitant]
     Active Substance: DIPHENHYDRAMINE
  5. EPI-PEN JR AUTOINJECTOR [Concomitant]
  6. DIPHENHIST [Concomitant]
     Active Substance: DIPHENHYDRAMINE HYDROCHLORIDE
     Dosage: 12.5/5 ML SOLUTION
  7. TRIAMCINOLONE [Concomitant]
     Active Substance: TRIAMCINOLONE
  8. HIZENTRA [Suspect]
     Active Substance: HUMAN IMMUNOGLOBULIN G
     Indication: HYPOGAMMAGLOBULINAEMIA
     Route: 058
     Dates: start: 20110929
  9. RANITIDINE. [Concomitant]
     Active Substance: RANITIDINE
     Dosage: 15 MG/ML SYRUP
  10. MUPIROCIN. [Concomitant]
     Active Substance: MUPIROCIN
  11. AMINO ACIDS [Concomitant]
     Active Substance: AMINO ACIDS
     Dosage: POWDER

REACTIONS (2)
  - Influenza [Unknown]
  - Nasopharyngitis [Unknown]
